FAERS Safety Report 15878050 (Version 1)
Quarter: 2019Q1

REPORT INFORMATION
  Report Type: Spontaneous
  Country: DE (occurrence: DE)
  Receive Date: 20190128
  Receipt Date: 20190128
  Transmission Date: 20190417
  Serious: Yes (Hospitalization, Other)
  Sender: FDA-Public Use
  Company Number: DE-ACCORD-103269

PATIENT
  Age: 53 Year
  Sex: Female

DRUGS (4)
  1. CLOZAPINE. [Suspect]
     Active Substance: CLOZAPINE
     Indication: PRODUCT USED FOR UNKNOWN INDICATION
     Dosage: DAILY DOSE: 600 MG MILLIGRAM(S) EVERY DAY
     Route: 048
     Dates: start: 20060101
  2. ATOSIL [Interacting]
     Active Substance: PROMETHAZINE HYDROCHLORIDE
     Indication: PRODUCT USED FOR UNKNOWN INDICATION
     Dosage: 25 MG, QD (ON DEMAND)
     Route: 048
     Dates: start: 20161104, end: 20161104
  3. DIPIPERON [Interacting]
     Active Substance: PIPAMPERONE
     Indication: PRODUCT USED FOR UNKNOWN INDICATION
     Dosage: DAILY DOSE: 40 MG MILLIGRAM(S) EVERY DAY
     Route: 048
     Dates: start: 20161004
  4. ABILIFY [Interacting]
     Active Substance: ARIPIPRAZOLE
     Indication: GENERALISED TONIC-CLONIC SEIZURE
     Dosage: DAILY DOSE: 10 MG MILLIGRAM(S) EVERY DAY
     Route: 048
     Dates: start: 20161103, end: 20161106

REACTIONS (13)
  - Restlessness [Unknown]
  - Prescribed underdose [Unknown]
  - Leukocytosis [Unknown]
  - Enuresis [Unknown]
  - Cerebral disorder [Unknown]
  - Subgaleal haematoma [Unknown]
  - Drug ineffective [Unknown]
  - Unresponsive to stimuli [Unknown]
  - Laboratory test abnormal [Unknown]
  - Generalised tonic-clonic seizure [Recovered/Resolved]
  - Leukoencephalopathy [Unknown]
  - Drug interaction [Unknown]
  - Sleep disorder [Unknown]

NARRATIVE: CASE EVENT DATE: 20161105
